FAERS Safety Report 11122331 (Version 1)
Quarter: 2015Q2

REPORT INFORMATION
  Report Type: Spontaneous
  Country: US (occurrence: US)
  Receive Date: 20150519
  Receipt Date: 20150519
  Transmission Date: 20150821
  Serious: Yes (Hospitalization, Other)
  Sender: FDA-Public Use
  Company Number: US-JNJFOC-20150507239

PATIENT
  Age: 16 Year
  Sex: Male
  Weight: 83.01 kg

DRUGS (7)
  1. HUMIRA [Suspect]
     Active Substance: ADALIMUMAB
     Indication: CROHN^S DISEASE
     Route: 058
     Dates: start: 20131027, end: 20131027
  2. LIALDA [Concomitant]
     Active Substance: MESALAMINE
     Route: 065
  3. VICODIN [Suspect]
     Active Substance: ACETAMINOPHEN\HYDROCODONE BITARTRATE
     Indication: PAIN
     Dosage: 40MG
     Route: 065
     Dates: start: 20140608, end: 20140608
  4. IRON [Concomitant]
     Active Substance: IRON
     Indication: IRON DEFICIENCY ANAEMIA
     Route: 042
  5. SUCRALFATE. [Concomitant]
     Active Substance: SUCRALFATE
     Route: 065
  6. REMICADE [Suspect]
     Active Substance: INFLIXIMAB
     Indication: CROHN^S DISEASE
     Route: 042
     Dates: start: 20131112
  7. HUMIRA [Suspect]
     Active Substance: ADALIMUMAB
     Indication: CROHN^S DISEASE
     Dosage: 40MG
     Route: 058
     Dates: start: 20131013, end: 20131013

REACTIONS (10)
  - Tremor [Recovered/Resolved]
  - Clostridium difficile infection [Recovered/Resolved]
  - Crohn^s disease [Unknown]
  - Inflammatory bowel disease [Unknown]
  - Probiotic therapy [Recovered/Resolved]
  - Malaise [Recovered/Resolved]
  - Colitis [Unknown]
  - Irritable bowel syndrome [Unknown]
  - Intestinal mucosal hypertrophy [Unknown]
  - Abdominal pain [Recovered/Resolved]

NARRATIVE: CASE EVENT DATE: 201310
